FAERS Safety Report 7505440-X (Version None)
Quarter: 2011Q2

REPORT INFORMATION
  Report Type: 
  Country: None (occurrence: None)
  Receive Date: 20110526
  Receipt Date: 20110523
  Transmission Date: 20111010
  Serious: Yes (Hospitalization, Other)
  Sender: FDA-Public Use
  Company Number: US-PFIZER INC-2011063406

PATIENT
  Sex: Female

DRUGS (7)
  1. VALIUM [Concomitant]
  2. CARBIDOPA + LEVODOPA [Concomitant]
  3. CHANTIX [Suspect]
     Indication: NICOTINE DEPENDENCE
     Dosage: 0.5 MG, 1X/DAY
     Route: 048
     Dates: start: 20110224, end: 20110226
  4. FLEXERIL [Concomitant]
  5. NEURONTIN [Concomitant]
  6. CHANTIX [Suspect]
     Dosage: 0.5 MG, 2X/DAY
     Dates: start: 20110227, end: 20110302
  7. CHANTIX [Suspect]
     Dosage: 1 MG, 2X/DAY
     Dates: start: 20110303, end: 20110311

REACTIONS (3)
  - HALLUCINATION, AUDITORY [None]
  - SUICIDE ATTEMPT [None]
  - SUICIDAL IDEATION [None]
